FAERS Safety Report 4361124-0 (Version None)
Quarter: 2004Q2

REPORT INFORMATION
  Report Type: 
  Country: None (occurrence: None)
  Receive Date: 20040520
  Receipt Date: 20040520
  Transmission Date: 20050107
  Serious: Yes (Hospitalization)
  Sender: FDA-Public Use
  Company Number: None

PATIENT
  Age: 52 Year
  Sex: Female
  Weight: 60.782 kg

DRUGS (5)
  1. ZELNORM [Suspect]
     Indication: ABDOMINAL DISTENSION
     Dosage: 2 MG TWICE DAILY
     Dates: start: 20040402, end: 20040501
  2. ZELNORM [Suspect]
     Indication: CONSTIPATION
     Dosage: 2 MG TWICE DAILY
     Dates: start: 20040402, end: 20040501
  3. ZELNORM [Suspect]
     Indication: IRRITABLE BOWEL SYNDROME
     Dosage: 2 MG TWICE DAILY
     Dates: start: 20040402, end: 20040501
  4. ACIPHEX [Concomitant]
  5. OXAZEPAM [Concomitant]

REACTIONS (9)
  - ASTHENIA [None]
  - BLOOD UREA INCREASED [None]
  - CHANGE OF BOWEL HABIT [None]
  - COLITIS ISCHAEMIC [None]
  - DYSPEPSIA [None]
  - FAECES DISCOLOURED [None]
  - NEPHROLITHIASIS [None]
  - URINE ABNORMALITY [None]
  - WEIGHT DECREASED [None]
